FAERS Safety Report 9803863 (Version 3)
Quarter: 2014Q2

REPORT INFORMATION
  Report Type: Spontaneous
  Country: US (occurrence: US)
  Receive Date: 20140108
  Receipt Date: 20140408
  Transmission Date: 20141212
  Serious: No
  Sender: FDA-Public Use
  Company Number: US-PFIZER INC-2014001462

PATIENT
  Age: 64 Year
  Sex: Female
  Weight: 69.39 kg

DRUGS (5)
  1. ADVIL [Suspect]
     Indication: PAIN
     Dosage: 200 MG, ONCE A DAY
     Route: 048
     Dates: end: 20131221
  2. ADVIL [Suspect]
     Indication: RHEUMATOID ARTHRITIS
  3. TYLENOL [Concomitant]
     Dosage: UNK
  4. SAVELLA [Concomitant]
     Indication: FIBROMYALGIA
     Dosage: UNK
  5. PREDNISONE [Concomitant]
     Indication: RHEUMATOID ARTHRITIS
     Dosage: UNK

REACTIONS (8)
  - Poor quality drug administered [Unknown]
  - Inflammation [Unknown]
  - Malaise [Unknown]
  - Oral discomfort [Unknown]
  - Nausea [Recovered/Resolved]
  - Dry mouth [Unknown]
  - Oral mucosal exfoliation [Unknown]
  - Product physical issue [Unknown]
